FAERS Safety Report 9674924 (Version 1)
Quarter: 2013Q4

REPORT INFORMATION
  Report Type: Report from Study
  Country: US (occurrence: US)
  Receive Date: 20131107
  Receipt Date: 20131107
  Transmission Date: 20140711
  Serious: No
  Sender: FDA-Public Use
  Company Number: US-VERTEX PHARMACEUTICALS INC-2013-010877

PATIENT
  Age: 25 Year
  Sex: Female

DRUGS (2)
  1. VX-770 [Suspect]
     Indication: CYSTIC FIBROSIS
     Dosage: 150 MG, QD
     Dates: start: 20120402
  2. VX-770 [Suspect]
     Dosage: 150 UNK, UNK
     Dates: start: 20131102

REACTIONS (1)
  - Chest discomfort [Recovered/Resolved]
